FAERS Safety Report 4544692-5 (Version None)
Quarter: 2005Q1

REPORT INFORMATION
  Report Type: 
  Country: None (occurrence: None)
  Receive Date: 20050103
  Receipt Date: 20050103
  Transmission Date: 20050727
  Serious: Yes (Life-Threatening, Hospitalization)
  Sender: FDA-Public Use
  Company Number: None

PATIENT
  Age: 68 Year
  Sex: Male
  Weight: 72.5755 kg

DRUGS (3)
  1. IMURAN [Suspect]
     Indication: CROHN'S DISEASE
     Dosage: 50 MG 1 PER DAY ORAL
     Route: 048
     Dates: start: 20041115, end: 20041222
  2. COLESTID [Concomitant]
  3. PENTASA [Concomitant]

REACTIONS (3)
  - ASTHENIA [None]
  - BLOOD TEST ABNORMAL [None]
  - THERAPY NON-RESPONDER [None]
